FAERS Safety Report 26083944 (Version 2)
Quarter: 2025Q4

REPORT INFORMATION
  Report Type: Spontaneous
  Country: US (occurrence: US)
  Receive Date: 20251124
  Receipt Date: 20251223
  Transmission Date: 20260117
  Serious: No
  Sender: AMGEN
  Company Number: US-AMGEN-USASP2025229741

PATIENT

DRUGS (6)
  1. PAVBLU [Suspect]
     Active Substance: AFLIBERCEPT-AYYH
     Indication: Product used for unknown indication
     Dosage: UNK
     Route: 065
  2. PAVBLU [Suspect]
     Active Substance: AFLIBERCEPT-AYYH
     Dosage: UNK
     Route: 065
  3. PAVBLU [Suspect]
     Active Substance: AFLIBERCEPT-AYYH
     Dosage: UNK
     Route: 065
  4. PAVBLU [Suspect]
     Active Substance: AFLIBERCEPT-AYYH
     Dosage: UNK
     Route: 065
  5. PAVBLU [Suspect]
     Active Substance: AFLIBERCEPT-AYYH
     Dosage: UNK
     Route: 065
  6. PAVBLU [Suspect]
     Active Substance: AFLIBERCEPT-AYYH
     Dosage: UNK
     Route: 065

REACTIONS (1)
  - Device physical property issue [Unknown]

NARRATIVE: CASE EVENT DATE: 20251113
